FAERS Safety Report 5066054-7 (Version None)
Quarter: 2006Q3

REPORT INFORMATION
  Report Type: 
  Country: None (occurrence: None)
  Receive Date: 20060731
  Receipt Date: 20060731
  Transmission Date: 20061208
  Serious: Yes (Hospitalization)
  Sender: FDA-Public Use
  Company Number: None

PATIENT
  Age: 73 Year
  Sex: Male
  Weight: 68.0396 kg

DRUGS (11)
  1. LEVAQUIN [Suspect]
     Indication: SKIN INFECTION
     Dosage: 100 MG 1
     Dates: start: 20060724, end: 20060724
  2. LEVAQUIN [Suspect]
     Indication: URINARY TRACT INFECTION
     Dosage: 100 MG 1
     Dates: start: 20060724, end: 20060724
  3. SINEMET [Concomitant]
  4. SINEMET CR [Concomitant]
  5. ZOLOFT [Concomitant]
  6. AEROSEPT [Concomitant]
  7. PAMALOR [Concomitant]
  8. ASPIRIN [Concomitant]
  9. BASOTECH [Concomitant]
  10. TENORMIN [Concomitant]
  11. ZYPREXA [Concomitant]

REACTIONS (5)
  - CONVULSION [None]
  - DELUSION [None]
  - DYSSTASIA [None]
  - GAIT DISTURBANCE [None]
  - HYPERHIDROSIS [None]
